FAERS Safety Report 7048087-4 (Version None)
Quarter: 2010Q4

REPORT INFORMATION
  Report Type: 
  Country: None (occurrence: None)
  Receive Date: 20101015
  Receipt Date: 20101007
  Transmission Date: 20110411
  Serious: Yes (Death, Other)
  Sender: FDA-Public Use
  Company Number: US-ABBOTT-10P-163-0661147-00

PATIENT

DRUGS (16)
  1. HUMIRA [Suspect]
     Indication: DRUG EXPOSURE DURING PREGNANCY
     Route: 064
  2. ENBREL [Suspect]
     Indication: DRUG EXPOSURE DURING PREGNANCY
     Route: 064
  3. MULTI-VITAMINS [Suspect]
     Indication: DRUG EXPOSURE DURING PREGNANCY
     Route: 064
  4. VITAMIN D [Suspect]
     Indication: DRUG EXPOSURE DURING PREGNANCY
     Route: 064
  5. FOLIC ACID [Suspect]
     Indication: DRUG EXPOSURE DURING PREGNANCY
     Route: 064
  6. PREDNISONE [Suspect]
     Indication: DRUG EXPOSURE DURING PREGNANCY
     Route: 064
  7. CELEBREX [Suspect]
     Indication: DRUG EXPOSURE DURING PREGNANCY
     Route: 064
  8. MYLANTA [Suspect]
     Indication: DRUG EXPOSURE DURING PREGNANCY
     Route: 064
  9. IMURAN [Suspect]
     Indication: DRUG EXPOSURE DURING PREGNANCY
     Route: 064
  10. RHOGAM [Suspect]
     Indication: DRUG EXPOSURE DURING PREGNANCY
     Route: 064
  11. INFLUENZA VACCINE [Suspect]
     Indication: DRUG EXPOSURE DURING PREGNANCY
     Route: 064
  12. CYCLOBENZAPRINE [Suspect]
     Indication: DRUG EXPOSURE DURING PREGNANCY
     Route: 064
  13. OMEPRAZOLE [Suspect]
     Indication: DRUG EXPOSURE DURING PREGNANCY
     Route: 064
  14. TYLENOL [Suspect]
     Indication: DRUG EXPOSURE DURING PREGNANCY
     Route: 064
  15. RHOGAM [Suspect]
  16. RHOGAM [Suspect]
     Route: 064

REACTIONS (6)
  - DRUG EXPOSURE DURING PREGNANCY [None]
  - ESCHERICHIA SEPSIS [None]
  - FOETAL DISTRESS SYNDROME [None]
  - PERSISTENT FOETAL CIRCULATION [None]
  - RESPIRATORY FAILURE [None]
  - SEPTIC SHOCK [None]
